FAERS Safety Report 9872210 (Version 3)
Quarter: 2015Q1

REPORT INFORMATION
  Report Type: Spontaneous
  Country: US (occurrence: US)
  Receive Date: 20140205
  Receipt Date: 20150222
  Transmission Date: 20150721
  Serious: No
  Sender: FDA-Public Use
  Company Number: US-ALLERGAN-1306252US

PATIENT
  Sex: Female

DRUGS (2)
  1. BOTOX COSMETIC [Suspect]
     Active Substance: ONABOTULINUMTOXINA
     Indication: SKIN WRINKLING
  2. BOTOX COSMETIC [Suspect]
     Active Substance: ONABOTULINUMTOXINA
     Indication: SKIN WRINKLING
     Dosage: UNK
     Route: 030
     Dates: start: 20130425, end: 20130425

REACTIONS (18)
  - Periorbital oedema [Not Recovered/Not Resolved]
  - Skin wrinkling [Not Recovered/Not Resolved]
  - Head discomfort [Recovering/Resolving]
  - Lid sulcus deepened [Not Recovered/Not Resolved]
  - Anxiety [Unknown]
  - Skin disorder [Unknown]
  - Facial paresis [Unknown]
  - Headache [Recovering/Resolving]
  - Head discomfort [Not Recovered/Not Resolved]
  - Limb discomfort [Not Recovered/Not Resolved]
  - Hypoaesthesia [Recovered/Resolved]
  - Insomnia [Unknown]
  - Muscle atrophy [Not Recovered/Not Resolved]
  - Abnormal sensation in eye [Not Recovered/Not Resolved]
  - Facial wasting [Unknown]
  - Paraesthesia [Unknown]
  - Hypoaesthesia [Unknown]
  - VIIth nerve paralysis [Not Recovered/Not Resolved]

NARRATIVE: CASE EVENT DATE: 20130425
